FAERS Safety Report 17563048 (Version 3)
Quarter: 2020Q4

REPORT INFORMATION
  Report Type: Spontaneous
  Country: US (occurrence: US)
  Receive Date: 20200319
  Receipt Date: 20201005
  Transmission Date: 20210113
  Serious: Yes (Hospitalization, Other)
  Sender: FDA-Public Use
  Company Number: US-TEVA-2020-US-1202441

PATIENT
  Age: 73 Year
  Sex: Female
  Weight: 52.16 kg

DRUGS (3)
  1. POTASSIUM [Concomitant]
     Active Substance: POTASSIUM
  2. ARMOUR THYROID [Concomitant]
     Active Substance: THYROID, PORCINE
     Indication: HYPOTHYROIDISM
  3. HYDROCHLOROTHIAZIDE. [Suspect]
     Active Substance: HYDROCHLOROTHIAZIDE
     Indication: HYPERTENSION
     Dosage: 25 MILLIGRAM DAILY; 1, AM PER DAY
     Route: 065
     Dates: start: 2015, end: 20200610

REACTIONS (15)
  - Panic attack [Unknown]
  - Blood potassium decreased [Unknown]
  - Chills [Unknown]
  - Concussion [Unknown]
  - Drug ineffective [Unknown]
  - Blood calcium increased [Unknown]
  - Loss of consciousness [Unknown]
  - Nasopharyngitis [Unknown]
  - Anxiety [Unknown]
  - Adverse event [Unknown]
  - Syncope [Unknown]
  - Asthenia [Unknown]
  - Fall [Unknown]
  - Muscle spasms [Unknown]
  - Dysphemia [Unknown]

NARRATIVE: CASE EVENT DATE: 20200730
